FAERS Safety Report 4600093-2 (Version None)
Quarter: 2005Q1

REPORT INFORMATION
  Report Type: 
  Country: None (occurrence: None)
  Receive Date: 20050303
  Receipt Date: 20050216
  Transmission Date: 20050727
  Serious: Yes (Death, Hospitalization)
  Sender: FDA-Public Use
  Company Number: AU_050208348

PATIENT
  Age: 57 Year
  Sex: Male

DRUGS (14)
  1. XIGRIS [Suspect]
     Indication: SEPSIS
     Dosage: 24 UG/KG/HR
     Dates: start: 20050121, end: 20050121
  2. GLYCOPYRROLATE [Concomitant]
  3. VITAMIN K [Concomitant]
  4. LASIX [Concomitant]
  5. HYDROCORTISONE [Concomitant]
  6. NORADRENALINE [Concomitant]
  7. VASOPRESSOR [Concomitant]
  8. MOXIFLOXACIN HCL [Concomitant]
  9. CIPROFLOXACIN [Concomitant]
  10. VANCOMYCIN [Concomitant]
  11. PROPOFOL [Concomitant]
  12. MIDAZOLAM [Concomitant]
  13. DOBUTAMINE HCL [Concomitant]
  14. HYSOCINE BUTYLBROMIDE [Concomitant]

REACTIONS (1)
  - MULTI-ORGAN FAILURE [None]
